FAERS Safety Report 17824191 (Version 1)
Quarter: 2020Q2

REPORT INFORMATION
  Report Type: Spontaneous
  Country: US (occurrence: US)
  Receive Date: 20200526
  Receipt Date: 20200526
  Transmission Date: 20200714
  Serious: Yes (Hospitalization)
  Sender: FDA-Public Use
  Company Number: NVSC2020US133499

PATIENT
  Sex: Male
  Weight: 88.45 kg

DRUGS (2)
  1. VERAPAMIL [Suspect]
     Active Substance: VERAPAMIL HYDROCHLORIDE
     Indication: PRODUCT USED FOR UNKNOWN INDICATION
     Dosage: UNK
     Route: 065
  2. ALPRAZOLAM. [Suspect]
     Active Substance: ALPRAZOLAM
     Indication: SLEEP DISORDER
     Dosage: 2 MG, BID
     Route: 048

REACTIONS (6)
  - Drug dependence [Unknown]
  - Nausea [Unknown]
  - Hypertension [Unknown]
  - Product use in unapproved indication [Unknown]
  - Malaise [Unknown]
  - Cardiac disorder [Unknown]
